FAERS Safety Report 4333876-7 (Version None)
Quarter: 2004Q2

REPORT INFORMATION
  Report Type: 
  Country: None (occurrence: None)
  Receive Date: 20040402
  Receipt Date: 20040319
  Transmission Date: 20050107
  Serious: Yes (Other)
  Sender: FDA-Public Use
  Company Number: S04-USA-00401-01

PATIENT
  Age: 72 Year
  Sex: Male

DRUGS (5)
  1. MEMANTINE HCL [Suspect]
     Indication: MENTAL IMPAIRMENT
     Dosage: 10 MG BID PO
     Route: 048
     Dates: start: 20031203, end: 20040119
  2. PROTONIX [Concomitant]
  3. PLAVIX [Concomitant]
  4. ATENOLOL [Concomitant]
  5. ARICEPT [Concomitant]

REACTIONS (5)
  - AORTIC CALCIFICATION [None]
  - ASCITES [None]
  - CHOLESTASIS [None]
  - COLITIS [None]
  - SPLENOMEGALY [None]
